FAERS Safety Report 21167199 (Version 1)
Quarter: 2022Q3

REPORT INFORMATION
  Report Type: Spontaneous
  Country: BE (occurrence: BE)
  Receive Date: 20220803
  Receipt Date: 20220803
  Transmission Date: 20221026
  Serious: Yes (Life-Threatening, Hospitalization, Other)
  Sender: FDA-Public Use
  Company Number: BE-Accord-269664

PATIENT
  Age: 75 Year
  Sex: Male
  Weight: 79 kg

DRUGS (3)
  1. PACLITAXEL [Suspect]
     Active Substance: PACLITAXEL
     Dosage: UNK, 1X/DAY
     Route: 042
     Dates: start: 20220613, end: 20220613
  2. NOBITEN [NEBIVOLOL] [Concomitant]
     Dosage: 5 MG, 1*2
  3. AMLODIPINE BESYLATE [Concomitant]
     Active Substance: AMLODIPINE BESYLATE
     Dosage: 5 MG, 1X/DAY

REACTIONS (2)
  - Cardiac arrest [Unknown]
  - Bronchospasm [Unknown]
